APPROVED DRUG PRODUCT: ARGATROBAN IN SODIUM CHLORIDE
Active Ingredient: ARGATROBAN
Strength: 50MG/50ML (1MG/ML) **Federal Register determination that product was not discontinued or withdrawn for safety or effectiveness reasons**
Dosage Form/Route: INJECTABLE;INTRAVENOUS
Application: N022434 | Product #001
Applicant: CIPLA LTD
Approved: Jun 29, 2011 | RLD: Yes | RS: No | Type: DISCN

PATENTS:
Patent 7589106 | Expires: Sep 26, 2027
Patent 7687516 | Expires: Sep 26, 2027